FAERS Safety Report 5442363-4 (Version None)
Quarter: 2007Q3

REPORT INFORMATION
  Report Type: 
  Country: None (occurrence: None)
  Receive Date: 20070904
  Receipt Date: 20070823
  Transmission Date: 20080115
  Serious: Yes (Other)
  Sender: FDA-Public Use
  Company Number: GB-PFIZER INC-2007071562

PATIENT
  Age: 34 Year
  Sex: Female

DRUGS (3)
  1. CHAMPIX [Suspect]
     Indication: SMOKING CESSATION THERAPY
     Route: 048
     Dates: start: 20070606, end: 20070725
  2. LOCERYL [Concomitant]
     Dates: start: 20070606
  3. NICOTINE [Concomitant]

REACTIONS (2)
  - MUCOSAL INFLAMMATION [None]
  - ORAL HERPES [None]
